FAERS Safety Report 15178962 (Version 1)
Quarter: 2018Q3

REPORT INFORMATION
  Report Type: Spontaneous
  Country: US (occurrence: US)
  Receive Date: 20180723
  Receipt Date: 20180723
  Transmission Date: 20181010
  Serious: Yes (Other)
  Sender: FDA-Public Use
  Company Number: US-STRIDES ARCOLAB LIMITED-2018SP000449

PATIENT

DRUGS (7)
  1. PRAMIPEXOLE DIHYDROCHLORIDE. [Suspect]
     Active Substance: PRAMIPEXOLE DIHYDROCHLORIDE
     Indication: PARKINSON^S DISEASE
     Dosage: UNK
     Route: 065
  2. LEVODOPA/CARBIDOPA [Suspect]
     Active Substance: CARBIDOPA\LEVODOPA
     Indication: PARKINSON^S DISEASE
     Dosage: UNK
     Route: 065
  3. PRAMIPEXOLE DIHYDROCHLORIDE. [Suspect]
     Active Substance: PRAMIPEXOLE DIHYDROCHLORIDE
     Dosage: UNK (REDUCED DOSAGE)
     Route: 065
  4. RASAGILINE. [Suspect]
     Active Substance: RASAGILINE
     Dosage: UNK (REDUCED DOSAGE)
     Route: 065
  5. LEVODOPA/CARBIDOPA [Suspect]
     Active Substance: CARBIDOPA\LEVODOPA
     Dosage: EQUIVALENT DOSE OF GREATER THAN 2000 MG/DAY
     Route: 065
  6. LEVODOPA/CARBIDOPA [Suspect]
     Active Substance: CARBIDOPA\LEVODOPA
     Dosage: UNK (REDUCED DOSAGE)
     Route: 065
  7. RASAGILINE. [Suspect]
     Active Substance: RASAGILINE
     Indication: PARKINSON^S DISEASE
     Dosage: UNK
     Route: 065

REACTIONS (5)
  - Dyskinesia [Recovered/Resolved]
  - On and off phenomenon [Recovered/Resolved]
  - Hallucination, tactile [Recovered/Resolved]
  - Orthostatic hypotension [Recovered/Resolved]
  - Somnolence [Recovered/Resolved]
